FAERS Safety Report 15808424 (Version 1)
Quarter: 2019Q1

REPORT INFORMATION
  Report Type: Spontaneous
  Country: US (occurrence: US)
  Receive Date: 20190110
  Receipt Date: 20190110
  Transmission Date: 20190417
  Serious: Yes (Hospitalization, Congenital Anomaly)
  Sender: FDA-Public Use
  Company Number: US-TEVA-2019-US-994614

PATIENT
  Age: 57 Year
  Sex: Female

DRUGS (2)
  1. FILGRASTIM [Suspect]
     Active Substance: FILGRASTIM
     Indication: FEBRILE NEUTROPENIA
     Dosage: DAILY
     Route: 065
  2. CAPECITABINE. [Suspect]
     Active Substance: CAPECITABINE
     Indication: INVASIVE DUCTAL BREAST CARCINOMA
     Route: 065

REACTIONS (19)
  - Lethargy [Recovered/Resolved]
  - Toxicity to various agents [Recovering/Resolving]
  - Dihydropyrimidine dehydrogenase deficiency [Unknown]
  - Swelling face [Recovering/Resolving]
  - Asthenia [Recovered/Resolved]
  - Nausea [Unknown]
  - Pancytopenia [Recovered/Resolved]
  - Drug ineffective [Unknown]
  - Hypersensitivity [Unknown]
  - Rash [Recovered/Resolved]
  - Diarrhoea [Recovered/Resolved]
  - Ventricular tachycardia [Unknown]
  - Lip swelling [Recovering/Resolving]
  - Febrile neutropenia [Unknown]
  - Vomiting [Unknown]
  - Stomatitis [Recovered/Resolved]
  - Enterocolitis haemorrhagic [Recovering/Resolving]
  - Confusional state [Recovering/Resolving]
  - Osmotic demyelination syndrome [Recovering/Resolving]
